FAERS Safety Report 12234882 (Version 3)
Quarter: 2016Q2

REPORT INFORMATION
  Report Type: Spontaneous
  Country: US (occurrence: US)
  Receive Date: 20160404
  Receipt Date: 20160613
  Transmission Date: 20160815
  Serious: Yes (Other)
  Sender: FDA-Public Use
  Company Number: US-DRREDDYS-DRL/USA/16/0078429

PATIENT
  Age: 49 Year
  Sex: Male
  Weight: 89.36 kg

DRUGS (5)
  1. ATORVASTATIN TABLETS 10MG, 20 MG, 40 MG (091650) [Suspect]
     Active Substance: ATORVASTATIN
     Indication: HYPERLIPIDAEMIA
     Route: 048
     Dates: start: 201503
  2. ATORVASTATIN TABLETS 10MG, 20 MG, 40 MG (091650) [Suspect]
     Active Substance: ATORVASTATIN
  3. ATORVASTATIN TABLETS 10MG, 20 MG, 40 MG (091650) [Suspect]
     Active Substance: ATORVASTATIN
  4. ATORVASTATIN TABLETS 10MG, 20 MG, 40 MG (091650) [Suspect]
     Active Substance: ATORVASTATIN
  5. ESCITALOPRAM [Concomitant]
     Active Substance: ESCITALOPRAM OXALATE
     Indication: PRODUCT USED FOR UNKNOWN INDICATION

REACTIONS (5)
  - Myalgia [Unknown]
  - Blood triglycerides increased [Unknown]
  - Drug ineffective [Unknown]
  - Muscle spasms [Not Recovered/Not Resolved]
  - Product quality issue [Unknown]

NARRATIVE: CASE EVENT DATE: 20160316
